FAERS Safety Report 8112309-9 (Version None)
Quarter: 2012Q1

REPORT INFORMATION
  Report Type: 
  Country: None (occurrence: None)
  Receive Date: 20120131
  Receipt Date: 20120123
  Transmission Date: 20120608
  Serious: Yes (Hospitalization)
  Sender: FDA-Public Use
  Company Number: USA/USA/12/ 0022767

PATIENT
  Age: 59 Year
  Sex: Female
  Weight: 68.0396 kg

DRUGS (5)
  1. LYRICA [Concomitant]
  2. LEVOFLOXACIN [Suspect]
     Indication: PNEUMONIA
     Dosage: 750 MG, 1 IN 1 D, ORAL
     Route: 048
     Dates: start: 20120104, end: 20120105
  3. CYMBALTA [Suspect]
     Dosage: 60 MG, 1 IN 1 D
  4. NEXIUM [Concomitant]
  5. AMITRIPTYLINE HCL [Concomitant]

REACTIONS (5)
  - DIARRHOEA HAEMORRHAGIC [None]
  - RENAL FAILURE [None]
  - SEROTONIN SYNDROME [None]
  - APHAGIA [None]
  - DRUG INTERACTION [None]
